FAERS Safety Report 10897911 (Version 8)
Quarter: 2015Q4

REPORT INFORMATION
  Report Type: Report from Study
  Country: US (occurrence: US)
  Receive Date: 20150309
  Receipt Date: 20151016
  Transmission Date: 20160304
  Serious: Yes (Other)
  Sender: FDA-Public Use
  Company Number: US-SA-2015SA027284

PATIENT
  Age: 55 Year
  Sex: Male

DRUGS (4)
  1. AUBAGIO [Suspect]
     Active Substance: TERIFLUNOMIDE
     Indication: MULTIPLE SCLEROSIS
     Route: 048
     Dates: start: 2015
  2. AUBAGIO [Suspect]
     Active Substance: TERIFLUNOMIDE
     Indication: MULTIPLE SCLEROSIS
     Route: 048
     Dates: start: 2015
  3. AUBAGIO [Suspect]
     Active Substance: TERIFLUNOMIDE
     Indication: MULTIPLE SCLEROSIS
     Route: 048
     Dates: start: 20150209
  4. TECFIDERA [Concomitant]
     Active Substance: DIMETHYL FUMARATE
     Indication: MULTIPLE SCLEROSIS
     Dates: start: 20140601, end: 20150216

REACTIONS (30)
  - Dizziness [Unknown]
  - Pollakiuria [Unknown]
  - Muscle spasms [Unknown]
  - Oropharyngeal pain [Unknown]
  - Visual acuity reduced [Unknown]
  - Decreased appetite [Recovering/Resolving]
  - Bladder disorder [Unknown]
  - Cough [Not Recovered/Not Resolved]
  - Sneezing [Unknown]
  - Asthenia [Recovering/Resolving]
  - Nasal discharge discolouration [Recovering/Resolving]
  - Drug dose omission [Unknown]
  - Multiple sclerosis [Recovered/Resolved]
  - Fatigue [Unknown]
  - Amnesia [Not Recovered/Not Resolved]
  - Headache [Unknown]
  - Chest discomfort [Unknown]
  - Eye pain [Unknown]
  - Nasopharyngitis [Recovering/Resolving]
  - White blood cell count decreased [Unknown]
  - Extra dose administered [Unknown]
  - Pain [Unknown]
  - Pulmonary congestion [Unknown]
  - Optic neuritis [Unknown]
  - Vision blurred [Unknown]
  - Influenza [Recovering/Resolving]
  - Throat irritation [Unknown]
  - Nasal congestion [Recovering/Resolving]
  - Fatigue [Recovering/Resolving]
  - Vertigo [Unknown]

NARRATIVE: CASE EVENT DATE: 2015
